FAERS Safety Report 7346699-1 (Version None)
Quarter: 2011Q1

REPORT INFORMATION
  Report Type: 
  Country: None (occurrence: None)
  Receive Date: 20110302
  Receipt Date: 20110224
  Transmission Date: 20110831
  Serious: Yes (Hospitalization)
  Sender: FDA-Public Use
  Company Number: CIP10002830

PATIENT
  Age: 78 Year
  Sex: Female

DRUGS (7)
  1. DEPO-MEDROL [Concomitant]
  2. BREDININ (MIZORIBINE) [Concomitant]
  3. ACTONEL [Suspect]
     Indication: OSTEOPOROSIS
     Dosage: 17.5 MG ONCE WEEKLY, ORAL
     Route: 048
     Dates: start: 20101012
  4. BENET (RISEDRONATE SODIUM) TABLET, 2.5MG [Suspect]
     Indication: OSTEOPOROSIS
     Dosage: 2.5 MG, ORAL
     Route: 048
     Dates: start: 20080129, end: 20101011
  5. LOXOMARIN (LOCOPROFEN SODIUM) [Concomitant]
  6. CARFENIL (LOBENZARIT SODIUM) [Concomitant]
  7. DICLOGENAC SODIUM (DICLOFENAC SODIUM) [Concomitant]

REACTIONS (8)
  - OSTEOMYELITIS [None]
  - NEOPLASM [None]
  - OSTEONECROSIS OF JAW [None]
  - PURULENCE [None]
  - OSTEOLYSIS [None]
  - BONE SWELLING [None]
  - RENAL FAILURE [None]
  - TOOTH LOSS [None]
